FAERS Safety Report 23901839 (Version 1)
Quarter: 2024Q2

REPORT INFORMATION
  Report Type: Spontaneous
  Country: US (occurrence: None)
  Receive Date: 20240526
  Receipt Date: 20240526
  Transmission Date: 20240715
  Serious: No
  Sender: FDA-Public Use
  Company Number: US-ROCHE-3237097

PATIENT

DRUGS (1)
  1. OCREVUS [Suspect]
     Active Substance: OCRELIZUMAB
     Indication: Multiple sclerosis
     Route: 065

REACTIONS (6)
  - Chest discomfort [Unknown]
  - Hypertension [Unknown]
  - Joint swelling [Unknown]
  - Insomnia [Unknown]
  - Dizziness [Unknown]
  - Neck pain [Unknown]
